FAERS Safety Report 8455666-6 (Version None)
Quarter: 2012Q2

REPORT INFORMATION
  Report Type: 
  Country: None (occurrence: None)
  Receive Date: 20120614
  Receipt Date: 20120606
  Transmission Date: 20120825
  Serious: Yes (Hospitalization)
  Sender: FDA-Public Use
  Company Number: DKLU1081692

PATIENT
  Age: 11 Month
  Sex: Male

DRUGS (2)
  1. SABRIL [Suspect]
     Indication: INFANTILE SPASMS
     Dosage: 500 MG MILLIGRAM(S), 2 IN 1 D, ORAL
     Route: 048
     Dates: start: 20120422, end: 20120423
  2. ACTH [Concomitant]

REACTIONS (4)
  - LETHARGY [None]
  - LISTLESS [None]
  - EYE DISORDER [None]
  - MITOCHONDRIAL ENCEPHALOMYOPATHY [None]
